FAERS Safety Report 21546702 (Version 1)
Quarter: 2022Q4

REPORT INFORMATION
  Report Type: Spontaneous
  Country: HR (occurrence: HR)
  Receive Date: 20221103
  Receipt Date: 20221103
  Transmission Date: 20230113
  Serious: Yes (Other)
  Sender: FDA-Public Use
  Company Number: None

PATIENT
  Age: 32 Year
  Sex: Female
  Weight: 50 kg

DRUGS (1)
  1. COPAXONE [Suspect]
     Active Substance: GLATIRAMER ACETATE
     Indication: Multiple sclerosis
     Dosage: FREQUENCY TIME : 0.33 WEEKS, DURATION : 4 MONTHS, ADR IS ADEQUATELY LABELLED: CHOKING SENSATION, CHE
     Route: 065
     Dates: start: 202204, end: 20220901

REACTIONS (5)
  - Choking [Recovered/Resolved]
  - Paraesthesia [Recovered/Resolved]
  - Chest discomfort [Recovered/Resolved]
  - Insomnia [Recovered/Resolved]
  - Asthenia [Recovered/Resolved]

NARRATIVE: CASE EVENT DATE: 20220801
